FAERS Safety Report 11358044 (Version 1)
Quarter: 2015Q3

REPORT INFORMATION
  Report Type: Spontaneous
  Country: US (occurrence: US)
  Receive Date: 20150803
  Receipt Date: 20150803
  Transmission Date: 20151125
  Serious: No
  Sender: FDA-Public Use
  Company Number: US-ELI_LILLY_AND_COMPANY-US200902004997

PATIENT
  Age: 15 Year
  Sex: Male
  Weight: 81.64 kg

DRUGS (3)
  1. STRATTERA [Suspect]
     Active Substance: ATOMOXETINE HYDROCHLORIDE
     Indication: ATTENTION DEFICIT/HYPERACTIVITY DISORDER
     Dosage: 65 MG, DAILY (1/D)
     Route: 065
     Dates: start: 200808
  2. OMEGA 3 [Concomitant]
     Active Substance: OMEGA-3 FATTY ACIDS
     Dosage: UNK, UNKNOWN
     Route: 065
  3. MELATONIN [Concomitant]
     Active Substance: MELATONIN
     Dosage: UNK, UNKNOWN
     Route: 065

REACTIONS (2)
  - Skin striae [Not Recovered/Not Resolved]
  - Feeling hot [Not Recovered/Not Resolved]

NARRATIVE: CASE EVENT DATE: 200809
